FAERS Safety Report 5817596-5 (Version None)
Quarter: 2008Q3

REPORT INFORMATION
  Report Type: 
  Country: None (occurrence: None)
  Receive Date: 20080722
  Receipt Date: 20080711
  Transmission Date: 20090109
  Serious: Yes (Hospitalization)
  Sender: FDA-Public Use
  Company Number: DE-GENENTECH-262010

PATIENT
  Sex: Male

DRUGS (2)
  1. RAPTIVA [Suspect]
     Indication: PSORIASIS
     Dosage: 125 MG, 1/WEEK
     Route: 058
     Dates: start: 20060101, end: 20080424
  2. URBASON (METHYLPREDNISOLONE) [Concomitant]
     Indication: DRUG USE FOR UNKNOWN INDICATION
     Dosage: 50 MG, UNK

REACTIONS (3)
  - HAEMORRHAGE [None]
  - SEGMENTED HYALINISING VASCULITIS [None]
  - THROMBOCYTOPENIA [None]
